FAERS Safety Report 18503594 (Version 1)
Quarter: 2020Q4

REPORT INFORMATION
  Report Type: Report from Study
  Country: US (occurrence: US)
  Receive Date: 20201113
  Receipt Date: 20201113
  Transmission Date: 20210114
  Serious: Yes (Hospitalization)
  Sender: FDA-Public Use
  Company Number: US-TAIHO ONCOLOGY  INC-EU-2020-04006

PATIENT
  Age: 88 Year
  Sex: Male

DRUGS (16)
  1. CARVEDILOL. [Concomitant]
     Active Substance: CARVEDILOL
  2. HYDRALAZINE [Concomitant]
     Active Substance: HYDRALAZINE HYDROCHLORIDE
  3. VIT D [Concomitant]
     Active Substance: VITAMIN D NOS
  4. BUMETANIDE. [Concomitant]
     Active Substance: BUMETANIDE
  5. LOSARTAN POTASSIUM. [Concomitant]
     Active Substance: LOSARTAN POTASSIUM
  6. METOLAZONE. [Concomitant]
     Active Substance: METOLAZONE
  7. ONDANSETRON [Concomitant]
     Active Substance: ONDANSETRON
  8. LONSURF [Suspect]
     Active Substance: TIPIRACIL HYDROCHLORIDE\TRIFLURIDINE
     Indication: COLON CANCER
     Dosage: DOSE, FREQUENCY AND CYCLE UNKNOWN
     Route: 048
  9. ATORVASTATIN [Concomitant]
     Active Substance: ATORVASTATIN
  10. MAGNESIUM [Concomitant]
     Active Substance: MAGNESIUM
  11. VITAMIN D3 [Concomitant]
     Active Substance: CHOLECALCIFEROL
  12. D3-100 [Concomitant]
  13. AMLODIPINE [Concomitant]
     Active Substance: AMLODIPINE BESYLATE
  14. GLIMEPIRIDE. [Concomitant]
     Active Substance: GLIMEPIRIDE
  15. CLOPIDOGREL [Concomitant]
     Active Substance: CLOPIDOGREL BISULFATE
  16. ELIQUIS [Concomitant]
     Active Substance: APIXABAN

REACTIONS (2)
  - Peripheral swelling [Not Recovered/Not Resolved]
  - Diarrhoea [Not Recovered/Not Resolved]

NARRATIVE: CASE EVENT DATE: 20201101
